FAERS Safety Report 7456014-0 (Version None)
Quarter: 2011Q2

REPORT INFORMATION
  Report Type: 
  Country: None (occurrence: None)
  Receive Date: 20110503
  Receipt Date: 20110425
  Transmission Date: 20111010
  Serious: Yes (Hospitalization)
  Sender: FDA-Public Use
  Company Number: US-MERCK-1104USA03522

PATIENT
  Age: 37 Year
  Sex: Male

DRUGS (1)
  1. ZOCOR [Suspect]
     Indication: HYPERKALAEMIA
     Route: 048
     Dates: start: 20110301, end: 20110328

REACTIONS (3)
  - RESPIRATORY DISTRESS [None]
  - OFF LABEL USE [None]
  - DYSPNOEA [None]
